FAERS Safety Report 9636520 (Version 1)
Quarter: 2013Q4

REPORT INFORMATION
  Report Type: Spontaneous
  Country: US (occurrence: None)
  Receive Date: 20131017
  Receipt Date: 20131017
  Transmission Date: 20140711
  Serious: Yes (Hospitalization)
  Sender: FDA-Public Use
  Company Number: 2013AP008891

PATIENT
  Age: 82 Year
  Sex: Male

DRUGS (8)
  1. LEVOFLOXACIN [Suspect]
     Indication: DIVERTICULITIS
     Route: 048
  2. CIPROFLOXACIN [Suspect]
     Indication: DIVERTICULITIS
     Route: 042
  3. NADOL [Concomitant]
  4. COUMADIN [Concomitant]
  5. ALLOPURINOL [Concomitant]
  6. ACCUPRIL [Concomitant]
  7. HYDROCHLOROTHIAZIDE [Concomitant]
  8. PREDNISONE [Concomitant]

REACTIONS (5)
  - Cardiac failure congestive [None]
  - Vasculitis [None]
  - Alveolar lung disease [None]
  - Respiratory failure [None]
  - Hypersensitivity [None]
